FAERS Safety Report 5598182-1 (Version None)
Quarter: 2008Q1

REPORT INFORMATION
  Report Type: 
  Country: None (occurrence: None)
  Receive Date: 20080122
  Receipt Date: 20080111
  Transmission Date: 20080703
  Serious: Yes (Hospitalization)
  Sender: FDA-Public Use
  Company Number: PHRM2008FR00577

PATIENT
  Sex: Female

DRUGS (3)
  1. TRILEPTAL [Suspect]
  2. URBANYL [Suspect]
     Route: 065
  3. EPITOMAX [Suspect]
     Route: 065

REACTIONS (4)
  - CAESAREAN SECTION [None]
  - CONVULSION [None]
  - DRUG EXPOSURE DURING PREGNANCY [None]
  - PREMATURE LABOUR [None]
